FAERS Safety Report 7970925-9 (Version None)
Quarter: 2011Q4

REPORT INFORMATION
  Report Type: 
  Country: None (occurrence: None)
  Receive Date: 20111212
  Receipt Date: 20111208
  Transmission Date: 20120403
  Serious: Yes (Life-Threatening, Hospitalization, Other)
  Sender: FDA-Public Use
  Company Number: AU-B.I. PHARMACEUTICALS,INC./RIDGEFIELD-2011-AU-02312AU

PATIENT
  Sex: Male
  Weight: 117 kg

DRUGS (17)
  1. PRADAXA [Suspect]
     Indication: ATRIAL FIBRILLATION
     Dosage: 300 MG
     Dates: start: 20110614
  2. COLOXYL WITH SENNA [Concomitant]
     Dosage: 50MG/8MG
     Route: 048
  3. LACTOCUR [Concomitant]
     Dosage: 13.36 G
     Route: 048
  4. PERINDOPRIL ARGININE [Concomitant]
     Dosage: 2.5 MG
     Route: 048
  5. DIGOXIN [Concomitant]
     Dosage: 125 MCG
     Route: 048
  6. DUROTRAM [Concomitant]
     Dosage: 100 MG
     Route: 048
  7. AMITRIPTYLINE HCL [Concomitant]
     Dosage: 50 MG
     Route: 048
  8. NORSPAN [Concomitant]
     Dosage: 0.7143 MG
     Route: 062
  9. PRADAXA [Suspect]
     Indication: CEREBROVASCULAR ACCIDENT PROPHYLAXIS
  10. BRICANYL [Concomitant]
     Indication: COUGH
     Route: 055
  11. LIPITOR [Concomitant]
     Dosage: 40 MG
     Route: 048
  12. DIAMICRON [Concomitant]
     Dosage: 120 MG
     Route: 048
  13. MICROLAX [Concomitant]
     Dosage: ENEMA, 3.125G-450MG-45MG/5ML
  14. SPIRIVA [Concomitant]
     Indication: COUGH
     Dosage: 18 MCG
     Route: 055
  15. FUROSEMIDE [Concomitant]
     Dosage: 40 MG
     Route: 048
  16. SERETIDE ACCUHALER [Concomitant]
     Indication: COUGH
     Dosage: 250MCG/50MCG
     Route: 055
  17. NEXIUM [Concomitant]
     Dosage: 20 MG
     Route: 048

REACTIONS (2)
  - ISCHAEMIC STROKE [None]
  - HEMIPARESIS [None]
